FAERS Safety Report 6382799-0 (Version None)
Quarter: 2009Q3

REPORT INFORMATION
  Report Type: 
  Country: None (occurrence: None)
  Receive Date: 20090930
  Receipt Date: 20090923
  Transmission Date: 20100115
  Serious: Yes (Hospitalization)
  Sender: FDA-Public Use
  Company Number: US-WYE-H11194809

PATIENT
  Age: 69 Year
  Sex: Male

DRUGS (2)
  1. TEMSIROLIMUS [Suspect]
     Indication: RENAL CELL CARCINOMA
     Dosage: 25 MG ON DAYS 1,8,15 AND 22
     Route: 042
     Dates: start: 20090520, end: 20090810
  2. BEVACIZUMAB [Suspect]
     Indication: RENAL CELL CARCINOMA
     Dosage: 10 MG/KG ON DAYS 1, AND 15
     Dates: start: 20090520, end: 20090810

REACTIONS (2)
  - ANAEMIA [None]
  - DEHYDRATION [None]
